FAERS Safety Report 5124609-5 (Version None)
Quarter: 2006Q4

REPORT INFORMATION
  Report Type: 
  Country: None (occurrence: None)
  Receive Date: 20061011
  Receipt Date: 20060831
  Transmission Date: 20070319
  Serious: Yes (Life-Threatening, Other)
  Sender: FDA-Public Use
  Company Number: US-BAYER-200613752BCC

PATIENT
  Sex: Female
  Weight: 71 kg

DRUGS (3)
  1. ASPIRIN [Suspect]
     Indication: MIGRAINE
     Dosage: TOTAL DAILY DOSE: 81 MG  UNIT DOSE: 81 MG
     Route: 048
     Dates: start: 19790101
  2. ADRENALINE [Concomitant]
  3. HERBS [Concomitant]

REACTIONS (4)
  - CEREBROVASCULAR ACCIDENT [None]
  - HEMIPLEGIA [None]
  - HYPERSENSITIVITY [None]
  - REACTION TO AZO-DYES [None]
